FAERS Safety Report 6204740-3 (Version None)
Quarter: 2009Q2

REPORT INFORMATION
  Report Type: 
  Country: None (occurrence: None)
  Receive Date: 20090527
  Receipt Date: 20090515
  Transmission Date: 20091009
  Serious: Yes (Other)
  Sender: FDA-Public Use
  Company Number: US-PFIZER INC-2009217100

PATIENT
  Sex: Female

DRUGS (1)
  1. ZOLOFT [Suspect]
     Indication: ANXIETY
     Dosage: 25 MG, 1X/DAY
     Dates: start: 19960601

REACTIONS (10)
  - ADENOMYOSIS [None]
  - BLADDER PROLAPSE [None]
  - COMA [None]
  - HYPOGLYCAEMIA [None]
  - POST-TRAUMATIC STRESS DISORDER [None]
  - THYROID DISORDER [None]
  - UNEVALUABLE EVENT [None]
  - URETHRAL PROLAPSE [None]
  - UTERINE PROLAPSE [None]
  - WEIGHT INCREASED [None]
